FAERS Safety Report 10009432 (Version 1)
Quarter: 2014Q1

REPORT INFORMATION
  Report Type: Spontaneous
  Country: AU (occurrence: AU)
  Receive Date: 20140313
  Receipt Date: 20140313
  Transmission Date: 20141002
  Serious: Yes (Other)
  Sender: FDA-Public Use
  Company Number: CHPA2014AU003787

PATIENT
  Sex: Female

DRUGS (1)
  1. NICOTINELL TTS 30 [Suspect]
     Indication: SMOKING CESSATION THERAPY
     Dosage: 21 MG, QD
     Route: 062

REACTIONS (2)
  - Asthma [Unknown]
  - Wheezing [Unknown]
